FAERS Safety Report 5517639-2 (Version None)
Quarter: 2007Q4

REPORT INFORMATION
  Report Type: 
  Country: None (occurrence: None)
  Receive Date: 20071114
  Receipt Date: 20071109
  Transmission Date: 20080405
  Serious: Yes (Hospitalization)
  Sender: FDA-Public Use
  Company Number: TR-ROXANE LABORATORIES, INC-2007-BP-24236RO

PATIENT
  Age: 54 Year
  Sex: Female

DRUGS (1)
  1. NAPROXEN [Suspect]
     Indication: ABDOMINAL PAIN
     Route: 048

REACTIONS (8)
  - BLOOD BILIRUBIN INCREASED [None]
  - CHROMATURIA [None]
  - HEPATIC ENZYME INCREASED [None]
  - HEPATITIS TOXIC [None]
  - JAUNDICE [None]
  - OCULAR ICTERUS [None]
  - PRURITUS GENERALISED [None]
  - YELLOW SKIN [None]
